FAERS Safety Report 13440081 (Version 1)
Quarter: 2017Q2

REPORT INFORMATION
  Report Type: Spontaneous
  Country: US (occurrence: US)
  Receive Date: 20170413
  Receipt Date: 20170413
  Transmission Date: 20170830
  Serious: No
  Sender: FDA-Public Use
  Company Number: US-ASTELLAS-2016US013595

PATIENT
  Age: 30 Year
  Sex: Male

DRUGS (1)
  1. PROGRAF [Suspect]
     Active Substance: TACROLIMUS\TACROLIMUS ANHYDROUS
     Indication: RENAL TRANSPLANT
     Dosage: 3 MG, (2 MG IN MORNING AND 1 MG IN EVENING)
     Route: 048
     Dates: start: 20120619

REACTIONS (4)
  - Back pain [Unknown]
  - Pyrexia [Unknown]
  - Diarrhoea [Unknown]
  - Amnesia [Unknown]

NARRATIVE: CASE EVENT DATE: 20150407
